FAERS Safety Report 11310649 (Version 1)
Quarter: 2015Q3

REPORT INFORMATION
  Report Type: Spontaneous
  Country: CA (occurrence: CA)
  Receive Date: 20150725
  Receipt Date: 20150725
  Transmission Date: 20151125
  Serious: Yes (Other)
  Sender: FDA-Public Use
  Company Number: CA-ROCHE-1612625

PATIENT
  Sex: Male

DRUGS (9)
  1. PREDNISONE. [Suspect]
     Active Substance: PREDNISONE
     Indication: PRODUCT USED FOR UNKNOWN INDICATION
     Route: 065
  2. VITAMIN B12 [Concomitant]
     Active Substance: CYANOCOBALAMIN
  3. CYCLOVIRAN [Concomitant]
     Active Substance: ACYCLOVIR
  4. VORICONAZOLE. [Concomitant]
     Active Substance: VORICONAZOLE
  5. RITUXAN [Suspect]
     Active Substance: RITUXIMAB
     Indication: GRAFT VERSUS HOST DISEASE
     Route: 042
     Dates: start: 2013
  6. SEPTRA [Concomitant]
     Active Substance: SULFAMETHOXAZOLE\TRIMETHOPRIM
  7. PANTOPRAZOLE [Concomitant]
     Active Substance: PANTOPRAZOLE SODIUM
  8. INSULIN [Concomitant]
     Active Substance: INSULIN NOS
  9. RISEDRONATE [Concomitant]
     Active Substance: RISEDRONATE SODIUM

REACTIONS (1)
  - Diabetes mellitus [Unknown]
